FAERS Safety Report 9716955 (Version 1)
Quarter: 2013Q4

REPORT INFORMATION
  Report Type: Spontaneous
  Country: US (occurrence: US)
  Receive Date: 20131127
  Receipt Date: 20131127
  Transmission Date: 20140711
  Serious: No
  Sender: FDA-Public Use
  Company Number: US-GILEAD-2009-0020101

PATIENT
  Age: 54 Year
  Sex: Female
  Weight: 84.37 kg

DRUGS (9)
  1. LETAIRIS [Suspect]
     Indication: PULMONARY HYPERTENSION
     Route: 048
     Dates: start: 20080815
  2. AZATHIOPRINE [Concomitant]
  3. PREDNISONE [Concomitant]
  4. LISINOPRIL [Concomitant]
  5. BUSPAR [Concomitant]
  6. HYDROCHLOROTHIAZIDE [Concomitant]
  7. SYMBICORT [Concomitant]
  8. SPIRIVA [Concomitant]
  9. EFFEXOR [Concomitant]

REACTIONS (3)
  - Chills [Recovered/Resolved with Sequelae]
  - Feeling of body temperature change [Recovered/Resolved with Sequelae]
  - Night sweats [Recovered/Resolved with Sequelae]
